FAERS Safety Report 17366019 (Version 2)
Quarter: 2020Q2

REPORT INFORMATION
  Report Type: Spontaneous
  Country: IT (occurrence: IT)
  Receive Date: 20200204
  Receipt Date: 20200401
  Transmission Date: 20200713
  Serious: Yes (Hospitalization)
  Sender: FDA-Public Use
  Company Number: IT-PFIZER INC-2020045043

PATIENT
  Age: 84 Year
  Sex: Male
  Weight: 76 kg

DRUGS (3)
  1. DAPTOMYCIN. [Concomitant]
     Active Substance: DAPTOMYCIN
     Indication: SEPSIS
     Dosage: 700 MG, 1X/DAY
     Route: 042
     Dates: start: 20191107, end: 20191122
  2. CEFEPIME [Concomitant]
     Active Substance: CEFEPIME HYDROCHLORIDE
     Indication: SEPSIS
     Dosage: 4 G, 1X/DAY
     Route: 042
     Dates: start: 20191109, end: 20191122
  3. ANIDULAFUNGIN [Suspect]
     Active Substance: ANIDULAFUNGIN
     Indication: SEPSIS
     Dosage: 100 MG, 1X/DAY
     Route: 042
     Dates: start: 20191119, end: 20191227

REACTIONS (3)
  - Urinary bladder haemorrhage [Recovered/Resolved with Sequelae]
  - Gastrointestinal haemorrhage [Recovered/Resolved with Sequelae]
  - Epistaxis [Recovered/Resolved with Sequelae]

NARRATIVE: CASE EVENT DATE: 20191126
